FAERS Safety Report 7916565-9 (Version None)
Quarter: 2011Q4

REPORT INFORMATION
  Report Type: 
  Country: None (occurrence: None)
  Receive Date: 20111116
  Receipt Date: 20111108
  Transmission Date: 20120403
  Serious: Yes (Hospitalization, Other)
  Sender: FDA-Public Use
  Company Number: JP-JNJFOC-20111102535

PATIENT
  Age: 67 Year
  Sex: Female

DRUGS (8)
  1. OXYCODONE HYDROCHLORIDE [Suspect]
     Indication: BONE PAIN
     Dosage: 400-500 MG
     Route: 048
  2. FENTANYL-100 [Suspect]
     Indication: BONE PAIN
     Route: 062
  3. FENTANYL-100 [Suspect]
     Indication: MULTIPLE MYELOMA
     Route: 062
  4. MORPHINE HCL ELIXIR [Concomitant]
     Route: 058
  5. OXYCODONE HYDROCHLORIDE [Suspect]
     Indication: MULTIPLE MYELOMA
     Dosage: 400-500 MG
     Route: 048
  6. MORPHINE HCL ELIXIR [Concomitant]
     Route: 058
  7. OXYCONTIN [Suspect]
     Indication: BONE PAIN
     Route: 048
  8. OXYCONTIN [Suspect]
     Indication: MULTIPLE MYELOMA
     Route: 048

REACTIONS (1)
  - PNEUMATOSIS INTESTINALIS [None]
